FAERS Safety Report 18809069 (Version 1)
Quarter: 2021Q1

REPORT INFORMATION
  Report Type: Spontaneous
  Country: US (occurrence: US)
  Receive Date: 20210129
  Receipt Date: 20210129
  Transmission Date: 20210419
  Serious: No
  Sender: FDA-Public Use
  Company Number: US-009507513-2101USA010402

PATIENT
  Age: 13 Year
  Sex: Female

DRUGS (8)
  1. PREDNISONE. [Concomitant]
     Active Substance: PREDNISONE
     Indication: FOCAL SEGMENTAL GLOMERULOSCLEROSIS
     Dosage: 40 MILLIGRAM, QD
  2. ZOCOR [Suspect]
     Active Substance: SIMVASTATIN
     Indication: NEPHROTIC SYNDROME
  3. VALSARTAN. [Concomitant]
     Active Substance: VALSARTAN
     Indication: NEPHROTIC SYNDROME
  4. VALSARTAN. [Concomitant]
     Active Substance: VALSARTAN
     Indication: FOCAL SEGMENTAL GLOMERULOSCLEROSIS
     Dosage: 80 MILLIGRAM, QD
  5. ZOCOR [Suspect]
     Active Substance: SIMVASTATIN
     Indication: FOCAL SEGMENTAL GLOMERULOSCLEROSIS
     Dosage: 20 MG, DAILY
     Route: 048
  6. PREDNISONE. [Concomitant]
     Active Substance: PREDNISONE
     Indication: NEPHROTIC SYNDROME
     Dosage: 20 MILLIGRAM, QD
  7. PIOGLITAZONE. [Concomitant]
     Active Substance: PIOGLITAZONE
     Indication: FOCAL SEGMENTAL GLOMERULOSCLEROSIS
     Dosage: 15 MILLIGRAM, QD
  8. PIOGLITAZONE. [Concomitant]
     Active Substance: PIOGLITAZONE
     Indication: NEPHROTIC SYNDROME
     Dosage: 30 MILLIGRAM, QD

REACTIONS (1)
  - Off label use [Unknown]
